FAERS Safety Report 8879568 (Version 1)
Quarter: 2012Q4

REPORT INFORMATION
  Report Type: 
  Country: US (occurrence: US)
  Receive Date: 20121031
  Receipt Date: 20121031
  Transmission Date: 20130627
  Serious: Yes (Other)
  Sender: FDA-Public Use
  Company Number: US-MEDICIS-2012P1061158

PATIENT
  Sex: Female

DRUGS (1)
  1. TAMBOCOR [Suspect]

REACTIONS (4)
  - Papilloedema [Recovered/Resolved]
  - Blindness [Not Recovered/Not Resolved]
  - Loss of consciousness [Recovered/Resolved]
  - Muscular weakness [Recovered/Resolved]
